FAERS Safety Report 7474931-2 (Version None)
Quarter: 2011Q2

REPORT INFORMATION
  Report Type: 
  Country: None (occurrence: None)
  Receive Date: 20110512
  Receipt Date: 20091122
  Transmission Date: 20111010
  Serious: Yes (Death, Other)
  Sender: FDA-Public Use
  Company Number: US-BAYER-200940122NA

PATIENT
  Age: 69 Year
  Sex: Female
  Weight: 74.83 kg

DRUGS (10)
  1. DEMADEX [Concomitant]
     Dosage: 20 MG, TID
     Route: 048
     Dates: start: 20060101
  2. ISOSORBIDE MONONITRATE [Concomitant]
     Dosage: 60 MG, QD
     Route: 048
  3. LANTUS [Concomitant]
     Dosage: 50 U, HS
     Route: 058
  4. TOPROL-XL [Concomitant]
     Dosage: 50 MG, BID
     Route: 048
  5. TRASYLOL [Suspect]
     Indication: PRODUCT USED FOR UNKNOWN INDICATION
     Route: 042
     Dates: start: 20080101
  6. ZAROXOLYN [Concomitant]
     Dosage: 2.5 MG, QD
     Route: 048
  7. CLONIDINE [Concomitant]
     Dosage: 0.1 MG, BID, LONG TERM USE
     Route: 048
  8. NIASPAN [Concomitant]
     Dosage: 1 MG, HS
     Route: 048
  9. NOVOLOG [Concomitant]
     Dosage: 14 U, TID
     Route: 058
  10. CARDIZEM [Concomitant]
     Dosage: 120 MG, HS
     Route: 048
     Dates: start: 20060101

REACTIONS (13)
  - RENAL IMPAIRMENT [None]
  - RENAL FAILURE [None]
  - STRESS [None]
  - UNEVALUABLE EVENT [None]
  - MULTI-ORGAN FAILURE [None]
  - ANXIETY [None]
  - EMOTIONAL DISTRESS [None]
  - INJURY [None]
  - RENAL INJURY [None]
  - FEAR [None]
  - PAIN [None]
  - ANHEDONIA [None]
  - DEATH [None]
